FAERS Safety Report 5389463-5 (Version None)
Quarter: 2007Q3

REPORT INFORMATION
  Report Type: 
  Country: None (occurrence: None)
  Receive Date: 20070717
  Receipt Date: 20070705
  Transmission Date: 20080115
  Serious: Yes (Other)
  Sender: FDA-Public Use
  Company Number: GB-BAUSCH-2007BL002265

PATIENT
  Age: 62 Year
  Sex: Male

DRUGS (11)
  1. CYCLOPENTOLATE HCL [Suspect]
     Route: 047
     Dates: start: 20070402, end: 20070402
  2. MINIMS PHENYLEPHRINE HYDROCHLORIDE 2.5% [Suspect]
     Route: 047
     Dates: start: 20070402, end: 20070402
  3. FLURBIPROFEN SODIUM [Suspect]
     Route: 047
     Dates: start: 20070402, end: 20070402
  4. POVIDONE IODINE [Suspect]
     Route: 047
     Dates: start: 20070402, end: 20070402
  5. POVIDONE IODINE [Suspect]
     Route: 061
     Dates: start: 20070402, end: 20070402
  6. BALANCED SALT SOLUTION [Suspect]
     Route: 031
     Dates: start: 20070402, end: 20070402
  7. VANCOMYCIN [Suspect]
     Route: 031
     Dates: start: 20070402, end: 20070402
  8. ADRENALINE [Suspect]
     Route: 031
     Dates: start: 20070402, end: 20070402
  9. LIDOCAINE [Suspect]
     Route: 031
     Dates: start: 20070402, end: 20070402
  10. HYALURONIDASE [Suspect]
     Route: 031
     Dates: start: 20070402, end: 20070402
  11. BETAMETHASONE/NEOMYCIN [Suspect]
     Route: 047
     Dates: start: 20070402

REACTIONS (1)
  - IRIDOCYCLITIS [None]
